FAERS Safety Report 19209614 (Version 4)
Quarter: 2021Q3

REPORT INFORMATION
  Report Type: Report from Study
  Country: KR (occurrence: KR)
  Receive Date: 20210504
  Receipt Date: 20210813
  Transmission Date: 20211014
  Serious: Yes (Hospitalization)
  Sender: FDA-Public Use
  Company Number: KR-ROCHE-2818356

PATIENT
  Age: 66 Year
  Sex: Male
  Weight: 59.2 kg

DRUGS (42)
  1. MOSUNETUZUMAB. [Suspect]
     Active Substance: MOSUNETUZUMAB
     Indication: B-CELL LYMPHOMA
     Dosage: ON 21/APR/2021 HE RECEIVED MOST RECENT DOSE OF MOSUNETUZUMAB PRIOR TO AE
     Route: 042
     Dates: start: 20210421
  2. CYCLOPHOSPHAMIDE. [Suspect]
     Active Substance: CYCLOPHOSPHAMIDE
     Indication: B-CELL LYMPHOMA
     Dosage: ON 21/APR/2021 HE RECEIVED MOST RECENT DOSE OF CYCLOPHOSPHAMIDE  PRIOR TO AE
     Route: 042
     Dates: start: 20210421
  3. LIPITOR [Concomitant]
     Active Substance: ATORVASTATIN CALCIUM
     Route: 048
  4. TYLENOL ER [Concomitant]
     Active Substance: ACETAMINOPHEN
     Route: 048
     Dates: start: 20210429, end: 20210429
  5. URSA [Concomitant]
     Active Substance: URSODIOL
     Dosage: 100 TABLET
     Route: 048
     Dates: start: 20210422, end: 20210422
  6. URSA [Concomitant]
     Active Substance: URSODIOL
     Route: 048
     Dates: start: 20210423, end: 20210428
  7. TAZIME [Concomitant]
     Active Substance: CEFTAZIDIME
     Route: 042
     Dates: start: 20210423, end: 20210423
  8. PLASMA SOLUTION A [Concomitant]
     Route: 042
     Dates: start: 20210505, end: 20210505
  9. TYLENOL ER [Concomitant]
     Active Substance: ACETAMINOPHEN
     Route: 048
     Dates: start: 20210428, end: 20210428
  10. CEFAZOLIN [Concomitant]
     Active Substance: CEFAZOLIN
     Route: 042
     Dates: start: 20210423, end: 20210423
  11. TYLENOL [Concomitant]
     Active Substance: ACETAMINOPHEN
     Route: 048
     Dates: start: 20210428, end: 20210428
  12. SOLONDO [Concomitant]
     Active Substance: PREDNISOLONE
     Route: 048
     Dates: start: 20210415, end: 20210420
  13. PENIRAMIN [Concomitant]
     Route: 042
     Dates: start: 20210505, end: 20210505
  14. ACETPHEN PREMIX [Concomitant]
     Route: 042
     Dates: start: 20210505, end: 20210505
  15. TAZIME [Concomitant]
     Active Substance: CEFTAZIDIME
     Route: 042
     Dates: start: 20210505, end: 20210505
  16. POLATUZUMAB VEDOTIN. [Suspect]
     Active Substance: POLATUZUMAB VEDOTIN
     Indication: B-CELL LYMPHOMA
     Dosage: ON 21/APR/2021 HE RECEIVED MOST RECENT DOSE OF POLATUZUMAB VEDOTIN PRIOR TO AE
     Route: 042
     Dates: start: 20210421
  17. DOXORUBICIN [Suspect]
     Active Substance: DOXORUBICIN
     Indication: B-CELL LYMPHOMA
     Dosage: ON 21/APR/2021 HE RECEIVED MOST RECENT DOSE OF DOXORUBICIN PRIOR TO AE
     Route: 042
     Dates: start: 20210421
  18. TYLENOL ER [Concomitant]
     Active Substance: ACETAMINOPHEN
     Route: 048
     Dates: start: 20210422, end: 20210422
  19. AKYNZEO [Concomitant]
     Active Substance: NETUPITANT\PALONOSETRON HYDROCHLORIDE
     Dosage: 1 CAPSULE
     Route: 048
     Dates: start: 20210421, end: 20210421
  20. PREDNISONE. [Suspect]
     Active Substance: PREDNISONE
     Indication: B-CELL LYMPHOMA
     Dosage: ON 21/APR/2021 HE RECEIVED MOST RECENT DOSE OF PREDNISOLONE PRIOR TO AE?ON 25/APR/2021, RECEIVED MOS
     Route: 048
     Dates: start: 20210421
  21. GASTER (SOUTH KOREA) [Concomitant]
     Route: 048
     Dates: start: 20210415, end: 20210425
  22. TYLENOL ER [Concomitant]
     Active Substance: ACETAMINOPHEN
     Route: 048
     Dates: start: 20210503, end: 20210504
  23. MACPERAN [Concomitant]
     Active Substance: METOCLOPRAMIDE HYDROCHLORIDE
     Route: 048
     Dates: start: 20210426, end: 20210528
  24. PYRIDOXINE [Concomitant]
     Active Substance: PYRIDOXINE
     Route: 048
     Dates: start: 20210331
  25. TYLENOL ER [Concomitant]
     Active Substance: ACETAMINOPHEN
     Route: 048
     Dates: start: 20210421, end: 20210421
  26. TYLENOL ER [Concomitant]
     Active Substance: ACETAMINOPHEN
     Route: 048
     Dates: start: 20210423, end: 20210423
  27. TYLENOL ER [Concomitant]
     Active Substance: ACETAMINOPHEN
     Route: 048
     Dates: start: 20210502, end: 20210502
  28. CEFAZOLIN [Concomitant]
     Active Substance: CEFAZOLIN
     Route: 042
     Dates: start: 20210505, end: 20210505
  29. PENIRAMIN [Concomitant]
     Route: 042
     Dates: start: 20210423, end: 20210423
  30. DEXAMETHASONE. [Concomitant]
     Active Substance: DEXAMETHASONE
     Route: 042
     Dates: start: 20210428, end: 20210428
  31. DICAMAX D PLUS [Concomitant]
     Dosage: 1 TABLET
     Route: 048
     Dates: start: 20210330
  32. ZYLORIC [Concomitant]
     Active Substance: ALLOPURINOL
     Dosage: 300 TABLET
     Dates: start: 20210418, end: 20210423
  33. SEPTRIN [Concomitant]
     Active Substance: SULFAMETHOXAZOLE\TRIMETHOPRIM
     Dosage: 1 TABLET
     Route: 048
     Dates: start: 20210421
  34. PENIRAMIN [Concomitant]
     Route: 042
     Dates: start: 20210428, end: 20210428
  35. NEULAPEG [Concomitant]
     Route: 058
     Dates: start: 20210424, end: 20210424
  36. TUBES2 [Concomitant]
     Dosage: 2 TABLET
     Route: 048
     Dates: start: 20210331
  37. PENIRAMIN [Concomitant]
     Route: 042
     Dates: start: 20210421, end: 20210421
  38. ACETPHEN PREMIX [Concomitant]
     Route: 042
     Dates: start: 20210421, end: 20210421
  39. CEFAZOLIN [Concomitant]
     Active Substance: CEFAZOLIN
     Route: 042
     Dates: start: 20210422, end: 20210422
  40. TAZIME [Concomitant]
     Active Substance: CEFTAZIDIME
     Route: 042
     Dates: start: 20210422, end: 20210422
  41. MACPERAN [Concomitant]
     Active Substance: METOCLOPRAMIDE HYDROCHLORIDE
     Route: 042
     Dates: start: 20210423, end: 20210423
  42. PHAZYME 95 [Concomitant]
     Route: 048
     Dates: start: 20210424, end: 20210517

REACTIONS (3)
  - Alanine aminotransferase increased [Recovered/Resolved]
  - Cytokine release syndrome [Recovered/Resolved]
  - Aspartate aminotransferase increased [Recovered/Resolved]

NARRATIVE: CASE EVENT DATE: 20210422
